FAERS Safety Report 7933517-3 (Version None)
Quarter: 2011Q4

REPORT INFORMATION
  Report Type: 
  Country: None (occurrence: None)
  Receive Date: 20111122
  Receipt Date: 20111112
  Transmission Date: 20120403
  Serious: Yes (Hospitalization, Other)
  Sender: FDA-Public Use
  Company Number: US-BAYER-2011-011242

PATIENT
  Age: 37 Year
  Sex: Female
  Weight: 99.773 kg

DRUGS (13)
  1. DROSPIRENONE AND ETHINYL ESTRADIOL [Suspect]
     Dosage: UNK
     Dates: start: 20020201, end: 20090301
  2. ALLEGRA-D 12 HOUR [Concomitant]
     Dosage: UNK
     Dates: start: 20030801
  3. YAZ [Suspect]
     Dosage: UNK
     Dates: start: 20020201, end: 20090301
  4. PREVACID [Concomitant]
     Dosage: UNK
     Dates: start: 20030822
  5. HYOSCYAMINE [Concomitant]
     Dosage: UNK
     Dates: start: 20030822
  6. YASMIN [Suspect]
     Dosage: UNK
     Dates: start: 20020201, end: 20090301
  7. EFFEXOR XR [Concomitant]
     Indication: DEPRESSION
     Dosage: UNK
     Dates: start: 20030822
  8. CELEBREX [Concomitant]
     Indication: FIBROMYALGIA
     Dosage: UNK
     Dates: start: 20050101
  9. SKELAXIN [Concomitant]
     Indication: FIBROMYALGIA
     Dosage: UNK
     Dates: start: 20050101
  10. PRILOSEC [Concomitant]
     Indication: ABDOMINAL PAIN UPPER
     Dosage: UNK
     Dates: start: 20030403
  11. NAPROXEN (ALEVE) [Concomitant]
  12. LIBRAX [Concomitant]
  13. ALIMENTARY TRACT AND METABOLISM [Concomitant]
     Indication: ABDOMINAL PAIN UPPER
     Dosage: UNK

REACTIONS (8)
  - ANXIETY [None]
  - DEEP VEIN THROMBOSIS [None]
  - PULMONARY EMBOLISM [None]
  - CHOLECYSTITIS CHRONIC [None]
  - EMOTIONAL DISTRESS [None]
  - GALLBLADDER DISORDER [None]
  - GENERAL PHYSICAL HEALTH DETERIORATION [None]
  - PAIN [None]
